FAERS Safety Report 9854918 (Version 1)
Quarter: 2013Q4

REPORT INFORMATION
  Report Type: Spontaneous
  Country: US (occurrence: None)
  Receive Date: 20131226
  Receipt Date: 20131226
  Transmission Date: 20140711
  Serious: Yes (Other)
  Sender: FDA-Public Use
  Company Number: PHEH2013US001282

PATIENT
  Age: 49 Year
  Sex: Male

DRUGS (4)
  1. EXFORGE (VALSARTAN, AMLODIPINE) UNKNOWN [Suspect]
  2. PRADAXA (DABIGATRAN ETEXILATE MESILATE) [Suspect]
  3. PROPAFENONE (PROPAFENONE) [Concomitant]
  4. WARFARIN (WARFARIN) [Concomitant]

REACTIONS (3)
  - Cardiac flutter [None]
  - Stress [None]
  - Fear [None]
